FAERS Safety Report 14252342 (Version 1)
Quarter: 2017Q4

REPORT INFORMATION
  Report Type: Report from Study
  Country: None (occurrence: DE)
  Receive Date: 20171205
  Receipt Date: 20171205
  Transmission Date: 20180321
  Serious: Yes (Hospitalization)
  Sender: FDA-Public Use
  Company Number: DE-ABBVIE-17K-062-2167746-00

PATIENT
  Age: 69 Year
  Sex: Male

DRUGS (2)
  1. DUODOPA [Suspect]
     Active Substance: CARBIDOPA\LEVODOPA
     Indication: PARKINSON^S DISEASE
     Dosage: MD 4.7 ML; CRD 3.7 ML/H; CRN 2.1 ML/H; ED 0.5 ML
     Route: 050
     Dates: start: 20140730, end: 2017
  2. DUODOPA [Suspect]
     Active Substance: CARBIDOPA\LEVODOPA
     Route: 050
     Dates: start: 2017

REACTIONS (4)
  - Gait disturbance [Unknown]
  - Stoma site discharge [Unknown]
  - Akinesia [Unknown]
  - Stoma site inflammation [Unknown]

NARRATIVE: CASE EVENT DATE: 201710
